FAERS Safety Report 9470940 (Version 2)
Quarter: 2013Q4

REPORT INFORMATION
  Report Type: Report from Study
  Country: CN (occurrence: CN)
  Receive Date: 20130822
  Receipt Date: 20131230
  Transmission Date: 20140711
  Serious: Yes (Other)
  Sender: FDA-Public Use
  Company Number: CN-ROCHE-1264894

PATIENT
  Sex: Female

DRUGS (4)
  1. PEGASYS [Suspect]
     Indication: HEPATITIS C
     Route: 058
     Dates: start: 201303, end: 201307
  2. PEGASYS [Suspect]
     Route: 058
     Dates: start: 201307, end: 201311
  3. PEGASYS [Suspect]
     Route: 058
     Dates: start: 201311, end: 201312
  4. PEGASYS [Suspect]
     Route: 058
     Dates: start: 201312

REACTIONS (2)
  - White blood cell count decreased [Unknown]
  - Platelet count decreased [Unknown]
